FAERS Safety Report 9601999 (Version 2)
Quarter: 2015Q3

REPORT INFORMATION
  Report Type: Report from Study
  Country: BR (occurrence: BR)
  Receive Date: 20131007
  Receipt Date: 20150911
  Transmission Date: 20151125
  Serious: Yes (Other)
  Sender: FDA-Public Use
  Company Number: PHHY2013BR111425

PATIENT
  Age: 76 Year
  Sex: Female
  Weight: 97 kg

DRUGS (1)
  1. ACLASTA [Suspect]
     Active Substance: ZOLEDRONIC ACID
     Indication: OSTEOPOROSIS
     Dosage: 1 DF, Q12MO
     Route: 042
     Dates: start: 2011

REACTIONS (7)
  - Condition aggravated [Unknown]
  - Spinal disorder [Unknown]
  - Malaise [Unknown]
  - Bone pain [Unknown]
  - Pulmonary embolism [Recovering/Resolving]
  - Arthralgia [Unknown]
  - Thrombosis [Recovering/Resolving]

NARRATIVE: CASE EVENT DATE: 201301
